FAERS Safety Report 6185304-7 (Version None)
Quarter: 2009Q2

REPORT INFORMATION
  Report Type: 
  Country: None (occurrence: None)
  Receive Date: 20090511
  Receipt Date: 20090428
  Transmission Date: 20091009
  Serious: Yes (Death)
  Sender: FDA-Public Use
  Company Number: KR-ROCHE-630300

PATIENT
  Sex: Male
  Weight: 46 kg

DRUGS (13)
  1. MYCOPHENOLATE MOFETIL [Suspect]
     Indication: KIDNEY TRANSPLANT REJECTION
     Route: 048
     Dates: start: 20081025
  2. MYCOPHENOLATE MOFETIL [Suspect]
     Route: 048
     Dates: start: 20081218, end: 20090126
  3. APROVEL [Concomitant]
     Dates: start: 20080106
  4. CAL-D-VITA [Concomitant]
     Dates: start: 20081122
  5. OMEPRAZOLE [Concomitant]
     Dates: start: 20081107
  6. ULTRACET [Concomitant]
     Dates: start: 20081114
  7. ACYCLOVIR [Concomitant]
     Dates: start: 20001123, end: 20090113
  8. BACTROBAN [Concomitant]
     Dates: start: 20081107, end: 20090113
  9. ALUMINIUM ACETATE SOLUTION [Concomitant]
     Dates: start: 20081028, end: 20090113
  10. NYSTATIN [Concomitant]
     Dates: start: 20081025
  11. HEXAMIDINE [Concomitant]
     Dates: start: 20081028
  12. NOVOLIN N [Concomitant]
     Dates: start: 20081004
  13. PREDNISOLONE [Concomitant]
     Dates: start: 20081030

REACTIONS (35)
  - APNOEA [None]
  - AREFLEXIA [None]
  - ASTHENIA [None]
  - BLOOD PRESSURE ABNORMAL [None]
  - BRONCHOPULMONARY ASPERGILLOSIS [None]
  - CARDIAC ARREST [None]
  - CENTRAL NERVOUS SYSTEM INFECTION [None]
  - CEREBELLAR INFARCTION [None]
  - CEREBELLAR ISCHAEMIA [None]
  - CEREBRAL INFARCTION [None]
  - CEREBRAL ISCHAEMIA [None]
  - CHILLS [None]
  - CRYPTOCOCCOSIS [None]
  - CYTOMEGALOVIRUS ANTIGEN POSITIVE [None]
  - DISEASE RECURRENCE [None]
  - DIZZINESS [None]
  - DYSPHAGIA [None]
  - HERPES ZOSTER [None]
  - HYPERHIDROSIS [None]
  - HYPOPHAGIA [None]
  - INTERSTITIAL LUNG DISEASE [None]
  - NOCARDIOSIS [None]
  - PANCYTOPENIA [None]
  - PNEUMOCYSTIS JIROVECI PNEUMONIA [None]
  - PNEUMONIA ASPIRATION [None]
  - PNEUMOPERITONEUM [None]
  - POOR PERIPHERAL CIRCULATION [None]
  - PULMONARY ALVEOLAR HAEMORRHAGE [None]
  - PULMONARY OEDEMA [None]
  - PYREXIA [None]
  - RENAL IMPAIRMENT [None]
  - RESPIRATORY FAILURE [None]
  - STREPTOCOCCAL INFECTION [None]
  - TUBERCULOSIS [None]
  - VERTEBRAL ARTERY STENOSIS [None]
